FAERS Safety Report 4470946-7 (Version None)
Quarter: 2004Q4

REPORT INFORMATION
  Report Type: 
  Country: None (occurrence: None)
  Receive Date: 20041011
  Receipt Date: 20041005
  Transmission Date: 20050328
  Serious: Yes (Disabling)
  Sender: FDA-Public Use
  Company Number: AT-MERCK-0410AUT00017

PATIENT
  Age: 76 Year
  Sex: Female

DRUGS (9)
  1. BISOPROLOL FUMARATE [Concomitant]
     Route: 048
  2. FUROSEMIDE SODIUM [Concomitant]
     Route: 065
  3. GLICLAZIDE [Concomitant]
     Route: 065
  4. HYDROCHLOROTHIAZIDE AND VALSARTAN [Concomitant]
     Route: 065
  5. METFORMIN HYDROCHLORIDE [Concomitant]
     Route: 065
  6. PAROXETINE HYDROCHLORIDE [Concomitant]
     Route: 065
  7. PHENPROCOUMON [Concomitant]
     Route: 065
  8. VIOXX [Suspect]
     Indication: OSTEOARTHRITIS
     Route: 048
     Dates: start: 20040406
  9. SIMVASTATIN [Concomitant]
     Route: 065

REACTIONS (1)
  - BRAIN DAMAGE [None]
